FAERS Safety Report 13964100 (Version 5)
Quarter: 2018Q2

REPORT INFORMATION
  Report Type: Spontaneous
  Country: AU (occurrence: AU)
  Receive Date: 20170913
  Receipt Date: 20180422
  Transmission Date: 20180711
  Serious: Yes (Disabling, Other)
  Sender: FDA-Public Use
  Company Number: AU-APOTEX-2017AP017847

PATIENT
  Sex: Male

DRUGS (3)
  1. APO-LANSOPRAZOLE [Concomitant]
     Active Substance: LANSOPRAZOLE
     Indication: PRODUCT USED FOR UNKNOWN INDICATION
     Dosage: UNK
     Route: 065
  2. PRAVASTATIN. [Suspect]
     Active Substance: PRAVASTATIN
     Dosage: 20 MG PER DAY
     Route: 048
     Dates: start: 201603, end: 201604
  3. PRAVASTATIN. [Suspect]
     Active Substance: PRAVASTATIN
     Indication: HYPERCHOLESTEROLAEMIA
     Dosage: 10 MG PER DAY
     Route: 048
     Dates: start: 201603

REACTIONS (6)
  - Tendonitis [Not Recovered/Not Resolved]
  - Joint swelling [Not Recovered/Not Resolved]
  - Gait inability [Not Recovered/Not Resolved]
  - Impaired quality of life [Not Recovered/Not Resolved]
  - Tendon disorder [Not Recovered/Not Resolved]
  - Tendon pain [Not Recovered/Not Resolved]
